FAERS Safety Report 7509535-6 (Version None)
Quarter: 2011Q2

REPORT INFORMATION
  Report Type: 
  Country: None (occurrence: None)
  Receive Date: 20110527
  Receipt Date: 20110518
  Transmission Date: 20111010
  Serious: Yes (Other)
  Sender: FDA-Public Use
  Company Number: US-AMGEN-USASP2011025771

PATIENT
  Age: 53 Year
  Sex: Male

DRUGS (4)
  1. NEURONTIN [Concomitant]
  2. ENBREL [Suspect]
     Indication: ANKYLOSING SPONDYLITIS
     Dosage: 50 MG, QWK
     Dates: start: 20090605, end: 20110101
  3. HYPNOTICS AND SEDATIVES [Concomitant]
  4. VALIUM [Concomitant]

REACTIONS (10)
  - SYNCOPE [None]
  - SLEEP APNOEA SYNDROME [None]
  - MUSCLE SPASMS [None]
  - BACK PAIN [None]
  - SPINAL DISORDER [None]
  - SCIATICA [None]
  - INSOMNIA [None]
  - BODY HEIGHT DECREASED [None]
  - SINUSITIS [None]
  - NASOPHARYNGITIS [None]
